FAERS Safety Report 16674763 (Version 1)
Quarter: 2019Q3

REPORT INFORMATION
  Report Type: Spontaneous
  Country: CN (occurrence: CN)
  Receive Date: 20190806
  Receipt Date: 20190806
  Transmission Date: 20191004
  Serious: Yes (Hospitalization)
  Sender: FDA-Public Use
  Company Number: CN-ELI_LILLY_AND_COMPANY-CN201907012629

PATIENT
  Sex: Female
  Weight: 56 kg

DRUGS (4)
  1. ATORVASTATIN [Suspect]
     Active Substance: ATORVASTATIN
     Indication: TARGETED CANCER THERAPY
     Dosage: 400 MG, SINGLE
     Route: 042
     Dates: start: 20190714, end: 20190714
  2. GEMZAR [Suspect]
     Active Substance: GEMCITABINE HYDROCHLORIDE
     Indication: OVARIAN CANCER METASTATIC
     Dosage: 1.78 G, SINGLE
     Route: 042
     Dates: start: 20190714, end: 20190714
  3. SODIUM CHLORIDE IV [Suspect]
     Active Substance: SODIUM CHLORIDE
     Indication: VEHICLE SOLUTION USE
     Dosage: 250 ML, BID
     Route: 042
     Dates: start: 20190714, end: 20190714
  4. SODIUM CHLORIDE IV [Suspect]
     Active Substance: SODIUM CHLORIDE
     Dosage: 100 ML, BID
     Dates: start: 20190714, end: 20190714

REACTIONS (5)
  - Granulocytopenia [Recovered/Resolved]
  - Decreased appetite [Recovered/Resolved]
  - Bone marrow failure [Recovered/Resolved]
  - Leukopenia [Recovered/Resolved]
  - Nausea [Recovered/Resolved]

NARRATIVE: CASE EVENT DATE: 20190717
